FAERS Safety Report 6528203-0 (Version None)
Quarter: 2010Q1

REPORT INFORMATION
  Report Type: 
  Country: None (occurrence: None)
  Receive Date: 20100106
  Receipt Date: 20091224
  Transmission Date: 20100710
  Serious: Yes (Hospitalization)
  Sender: FDA-Public Use
  Company Number: JP-BAYER-200914840BYL

PATIENT
  Age: 76 Year
  Sex: Female
  Weight: 46 kg

DRUGS (5)
  1. NEXAVAR [Suspect]
     Indication: RENAL CELL CARCINOMA
     Dosage: TOTAL DAILY DOSE: 800 MG  UNIT DOSE: 200 MG
     Route: 048
     Dates: start: 20090106, end: 20091201
  2. AZUNOL GARGLE LIQUID [Concomitant]
     Route: 002
     Dates: start: 20081219
  3. HYPEN [Concomitant]
     Route: 048
     Dates: start: 20081224
  4. TAKEPRON [Concomitant]
     Route: 048
     Dates: start: 20081224
  5. PL [Concomitant]
     Indication: NASOPHARYNGITIS
     Route: 048
     Dates: start: 20090113, end: 20090119

REACTIONS (14)
  - BLOOD ALBUMIN DECREASED [None]
  - BLOOD LACTATE DEHYDROGENASE INCREASED [None]
  - COLITIS ISCHAEMIC [None]
  - DECREASED APPETITE [None]
  - DIARRHOEA [None]
  - EOSINOPHIL COUNT ABNORMAL [None]
  - HAEMATOCRIT ABNORMAL [None]
  - HAEMOGLOBIN ABNORMAL [None]
  - HYPOKALAEMIA [None]
  - HYPOTHYROIDISM [None]
  - MELAENA [None]
  - PALMAR-PLANTAR ERYTHRODYSAESTHESIA SYNDROME [None]
  - PROTEIN TOTAL DECREASED [None]
  - RED BLOOD CELL COUNT ABNORMAL [None]
